FAERS Safety Report 8517973-8 (Version None)
Quarter: 2012Q3

REPORT INFORMATION
  Report Type: 
  Country: None (occurrence: None)
  Receive Date: 20120718
  Receipt Date: 20120705
  Transmission Date: 20120928
  Serious: Yes (Death)
  Sender: FDA-Public Use
  Company Number: PT-ASTELLAS-2012US006133

PATIENT
  Age: 8 Year
  Sex: Female

DRUGS (2)
  1. AMBISOME [Suspect]
     Indication: CANDIDIASIS
     Dosage: 3 MG/KG, UID/QD
     Route: 042
  2. CASPOFUNGIN ACETATE [Concomitant]
     Indication: CANDIDIASIS
     Dosage: UNK
     Route: 065

REACTIONS (2)
  - DRUG INEFFECTIVE [None]
  - CANDIDIASIS [None]
